FAERS Safety Report 11855480 (Version 3)
Quarter: 2016Q3

REPORT INFORMATION
  Report Type: Spontaneous
  Country: US (occurrence: US)
  Receive Date: 20151221
  Receipt Date: 20160727
  Transmission Date: 20161109
  Serious: Yes (Other)
  Sender: FDA-Public Use
  Company Number: CHPA2015US014977

PATIENT

DRUGS (3)
  1. VOLTAREN [Suspect]
     Active Substance: DICLOFENAC SODIUM
     Indication: ARTHRALGIA
  2. VOLTAREN [Suspect]
     Active Substance: DICLOFENAC SODIUM
     Indication: PAIN IN EXTREMITY
     Dosage: 6 G, QID
     Route: 061
     Dates: start: 201512
  3. VOLTAREN [Suspect]
     Active Substance: DICLOFENAC SODIUM
     Indication: ARTHRALGIA
     Dosage: UNK UNK, BID
     Route: 061

REACTIONS (9)
  - Arthritis [Unknown]
  - Drug administered at inappropriate site [Unknown]
  - Eye disorder [Unknown]
  - Inappropriate schedule of drug administration [Unknown]
  - Hypoacusis [Unknown]
  - Therapeutic response unexpected [Unknown]
  - Product use issue [Unknown]
  - Incorrect dose administered [Unknown]
  - Off label use [Unknown]

NARRATIVE: CASE EVENT DATE: 201512
